FAERS Safety Report 9315356 (Version 3)
Quarter: 2013Q4

REPORT INFORMATION
  Report Type: Spontaneous
  Country: US (occurrence: US)
  Receive Date: 20130529
  Receipt Date: 20131205
  Transmission Date: 20140711
  Serious: Yes (Hospitalization)
  Sender: FDA-Public Use
  Company Number: US-B.I. PHARMACEUTICALS,INC./RIDGEFIELD-2013-BI-14700BP

PATIENT
  Age: 64 Year
  Sex: Male
  Weight: 90.72 kg

DRUGS (14)
  1. PRADAXA [Suspect]
     Indication: ATRIAL FIBRILLATION
     Dosage: 300 MG
     Route: 048
     Dates: start: 20110513, end: 20111013
  2. ALEVE [Concomitant]
     Route: 048
     Dates: start: 2005, end: 2011
  3. ALLOPURINOL [Concomitant]
     Dosage: 300 MG
     Route: 048
  4. CARDIZEM [Concomitant]
     Dosage: 180 MG
     Route: 048
  5. FLEXERIL [Concomitant]
     Indication: PAIN
     Route: 048
  6. GLIMEPIRIDE [Concomitant]
     Dosage: 4 MG
     Route: 048
  7. GLIPIZIDE [Concomitant]
     Dosage: 20 MG
     Route: 048
     Dates: start: 2004, end: 2012
  8. JANUVIA [Concomitant]
     Route: 048
  9. LISINOPRIL [Concomitant]
     Dosage: 5 MG
     Route: 048
  10. METFORMIN [Concomitant]
     Dosage: 1500 MG
     Route: 048
  11. METFORMIN [Concomitant]
     Dosage: 1000 MG
     Route: 048
  12. METOPROLOL TARTRATE [Concomitant]
     Dosage: 25 MG
     Route: 048
     Dates: start: 2004, end: 2012
  13. RYTHMOL [Concomitant]
  14. VYTORIN [Concomitant]
     Route: 048

REACTIONS (2)
  - Gastrointestinal haemorrhage [Recovered/Resolved]
  - Anaemia [Recovered/Resolved]
